FAERS Safety Report 9981423 (Version 2)
Quarter: 2014Q1

REPORT INFORMATION
  Report Type: Spontaneous
  Country: JP (occurrence: JP)
  Receive Date: 20140307
  Receipt Date: 20140326
  Transmission Date: 20141002
  Serious: Yes (Other)
  Sender: FDA-Public Use
  Company Number: JP-JNJFOC-20140211939

PATIENT
  Age: 6 Decade
  Sex: Male
  Weight: 95 kg

DRUGS (2)
  1. TRAMCET [Suspect]
     Indication: PAIN
     Dosage: 1 DOSE TWICE A DAY
     Route: 048
  2. LYRICA [Suspect]
     Indication: PAIN
     Route: 048

REACTIONS (2)
  - Road traffic accident [Unknown]
  - Feeling abnormal [Unknown]
